FAERS Safety Report 9122501 (Version 1)
Quarter: 2013Q1

REPORT INFORMATION
  Report Type: Spontaneous
  Country: NL (occurrence: NL)
  Receive Date: 20130227
  Receipt Date: 20130227
  Transmission Date: 20140127
  Serious: Yes (Other)
  Sender: FDA-Public Use
  Company Number: PHHY2013NL018807

PATIENT
  Sex: Male

DRUGS (2)
  1. ZOMETA [Suspect]
     Indication: PROSTATE CANCER METASTATIC
     Dosage: 4 MG, PER 100ML ONCE PER 28 DAYS
  2. ZOMETA [Suspect]
     Dosage: 4 MG, PER 100ML ONCE PER 28 DAYS
     Dates: start: 20130129

REACTIONS (1)
  - Terminal state [Unknown]
